FAERS Safety Report 19569180 (Version 3)
Quarter: 2022Q2

REPORT INFORMATION
  Report Type: Spontaneous
  Country: US (occurrence: US)
  Receive Date: 20210716
  Receipt Date: 20220609
  Transmission Date: 20220721
  Serious: No
  Sender: FDA-Public Use
  Company Number: US-AVEO ONCOLOGY-2021-AVEO-US003356

PATIENT

DRUGS (20)
  1. FOTIVDA [Suspect]
     Active Substance: TIVOZANIB HYDROCHLORIDE
     Indication: Renal cancer
     Dosage: 1.34 MG, DAILY
  2. FOTIVDA [Suspect]
     Active Substance: TIVOZANIB HYDROCHLORIDE
     Dosage: 1.34 1 CAPSULE ONCE DAILY FOR 21 DAYS/7 DAYS OFF
     Route: 048
     Dates: start: 20220125, end: 20220211
  3. ROSUVASTATIN [Concomitant]
     Active Substance: ROSUVASTATIN
  4. PRILOSEC [Concomitant]
     Active Substance: OMEPRAZOLE MAGNESIUM
  5. LOSARTAN [Concomitant]
     Active Substance: LOSARTAN
  6. FINASTERIDE [Concomitant]
     Active Substance: FINASTERIDE
  7. ELIQUIS [Concomitant]
     Active Substance: APIXABAN
  8. CALCIUM\VITAMIN D [Concomitant]
     Active Substance: CALCIUM\VITAMIN D
  9. ZYRTEC [Concomitant]
     Active Substance: CETIRIZINE HYDROCHLORIDE
  10. PERIDEX [Concomitant]
     Active Substance: CHLORHEXIDINE GLUCONATE
  11. MAALOX ANTACID [Concomitant]
     Active Substance: ALUMINUM HYDROXIDE\DIMETHICONE\MAGNESIUM HYDROXIDE
  12. FAMOTIDINE [Concomitant]
     Active Substance: FAMOTIDINE
  13. PROSCAR [Concomitant]
     Active Substance: FINASTERIDE
  14. LEVEMIR [Concomitant]
     Active Substance: INSULIN DETEMIR
  15. LEVOTHYROXINE [Concomitant]
     Active Substance: LEVOTHYROXINE
  16. MAGNESIUM OXIDE [Concomitant]
     Active Substance: MAGNESIUM OXIDE
  17. VITAMINS [Concomitant]
     Active Substance: VITAMINS
  18. MINOXIDIL [Concomitant]
     Active Substance: MINOXIDIL
  19. OMEPRAZOLE [Concomitant]
     Active Substance: OMEPRAZOLE
  20. GAS-X [Concomitant]
     Active Substance: DIMETHICONE

REACTIONS (2)
  - Decreased appetite [Unknown]
  - Disease progression [Unknown]

NARRATIVE: CASE EVENT DATE: 20220211
